FAERS Safety Report 19260563 (Version 2)
Quarter: 2021Q2

REPORT INFORMATION
  Report Type: Spontaneous
  Country: JP (occurrence: JP)
  Receive Date: 20210514
  Receipt Date: 20210528
  Transmission Date: 20210717
  Serious: Yes (Other)
  Sender: FDA-Public Use
  Company Number: JP-ASTRAZENECA-2021A417750

PATIENT
  Age: 72 Year
  Sex: Male
  Weight: 50 kg

DRUGS (10)
  1. ENALAPRIL [Concomitant]
     Active Substance: ENALAPRIL
     Dosage: DOSE UNKNOWN
     Route: 048
     Dates: end: 2021
  2. FUROSEMIDE. [Concomitant]
     Active Substance: FUROSEMIDE
     Dosage: DOSE UNKNOWN
     Route: 065
  3. BISOPROLOL [Concomitant]
     Active Substance: BISOPROLOL
     Dosage: DOSE UNKNOWN
     Route: 065
  4. SPIRONOLACTONE. [Concomitant]
     Active Substance: SPIRONOLACTONE
     Dosage: DOSE UNKNOWN
     Route: 048
     Dates: end: 2021
  5. FEBUXOSTAT. [Concomitant]
     Active Substance: FEBUXOSTAT
     Dosage: DOSE UNKNOWN
     Route: 048
  6. BISOPROLOL [Concomitant]
     Active Substance: BISOPROLOL
     Dosage: DOSE UNKNOWN
     Route: 065
     Dates: end: 2021
  7. CALCIUM PANTOTHENATE [Concomitant]
     Active Substance: CALCIUM PANTOTHENATE
     Dosage: DOSE UNKNOWN
     Route: 048
  8. ENALAPRIL [Concomitant]
     Active Substance: ENALAPRIL
     Dosage: DOSE UNKNOWN
     Route: 048
  9. NEXIUM [Suspect]
     Active Substance: ESOMEPRAZOLE MAGNESIUM
     Dosage: UNKNOWN DOSE AND FREQUENCY
     Route: 048
  10. AMLODIPINE [Concomitant]
     Active Substance: AMLODIPINE BESYLATE
     Dosage: DOSE UNKNOWN
     Route: 048

REACTIONS (6)
  - Bradycardia [Unknown]
  - Hyperkalaemia [Unknown]
  - Diarrhoea [Not Recovered/Not Resolved]
  - Cold sweat [Not Recovered/Not Resolved]
  - Nausea [Not Recovered/Not Resolved]
  - Arrhythmia [Unknown]
